FAERS Safety Report 9130354 (Version 2)
Quarter: 2013Q3

REPORT INFORMATION
  Report Type: Spontaneous
  Country: US (occurrence: US)
  Receive Date: 20130228
  Receipt Date: 20130826
  Transmission Date: 20140515
  Serious: No
  Sender: FDA-Public Use
  Company Number: US-ASTRAZENECA-2012SE78494

PATIENT
  Age: 74 Year
  Sex: Female

DRUGS (2)
  1. NEXIUM [Suspect]
     Route: 048
  2. MECLIZINE [Concomitant]
     Indication: INNER EAR DISORDER

REACTIONS (8)
  - Crohn^s disease [Unknown]
  - Thinking abnormal [Unknown]
  - Feeling abnormal [Unknown]
  - Inner ear disorder [Unknown]
  - Dyspepsia [Unknown]
  - Abdominal pain upper [Unknown]
  - Confusional state [Unknown]
  - Drug dose omission [Unknown]
